FAERS Safety Report 13602246 (Version 1)
Quarter: 2017Q2

REPORT INFORMATION
  Report Type: Spontaneous
  Country: None (occurrence: FI)
  Receive Date: 20170601
  Receipt Date: 20170601
  Transmission Date: 20170830
  Serious: Yes (Other)
  Sender: FDA-Public Use
  Company Number: FI-LABORATOIRE HRA PHARMA-2021458

PATIENT
  Age: 24 Year
  Sex: Female

DRUGS (1)
  1. ELLA [Suspect]
     Active Substance: ULIPRISTAL ACETATE
     Route: 048
     Dates: start: 20170226, end: 20170226

REACTIONS (2)
  - Unintended pregnancy [None]
  - Abortion spontaneous [None]
